FAERS Safety Report 9164689 (Version 1)
Quarter: 2013Q1

REPORT INFORMATION
  Report Type: Spontaneous
  Country: GB (occurrence: None)
  Receive Date: 20130221
  Receipt Date: 20130221
  Transmission Date: 20140127
  Serious: Yes (Other)
  Sender: FDA-Public Use
  Company Number: 2013-02465

PATIENT
  Age: 21 Year
  Sex: Male
  Weight: 63.5 kg

DRUGS (1)
  1. CITALOPRAM (CITALOPRAM) [Suspect]
     Indication: ANXIETY
     Route: 048
     Dates: start: 200907, end: 201102

REACTIONS (10)
  - Disturbance in sexual arousal [None]
  - Libido decreased [None]
  - Erectile dysfunction [None]
  - Cognitive disorder [None]
  - Sexual dysfunction [None]
  - Emotional distress [None]
  - Feeling abnormal [None]
  - Dissociation [None]
  - Disturbance in attention [None]
  - Blunted affect [None]
